FAERS Safety Report 14268773 (Version 1)
Quarter: 2017Q4

REPORT INFORMATION
  Report Type: Spontaneous
  Country: DE (occurrence: DE)
  Receive Date: 20171211
  Receipt Date: 20171211
  Transmission Date: 20180321
  Serious: Yes (Death)
  Sender: FDA-Public Use
  Company Number: DE-SA-2017SA246897

PATIENT
  Age: 62 Year
  Sex: Female

DRUGS (5)
  1. METHYLPREDNISOLONE. [Concomitant]
     Active Substance: METHYLPREDNISOLONE
     Indication: IMMUNOSUPPRESSANT DRUG THERAPY
     Route: 065
  2. CYCLOSPORIN A [Concomitant]
     Active Substance: CYCLOSPORINE
     Indication: IMMUNOSUPPRESSANT DRUG THERAPY
     Route: 065
  3. PRIMAQUINE PHOSPHATE. [Suspect]
     Active Substance: PRIMAQUINE PHOSPHATE
     Indication: PLASMODIUM VIVAX INFECTION
     Dosage: ORAL PRIMAQUINE (TOTAL DOSE 210 MG)
     Route: 065
  4. GANCICLOVIR. [Concomitant]
     Active Substance: GANCICLOVIR
     Indication: CYTOMEGALOVIRUS INFECTION
     Route: 065
  5. CHLOROQUINE. [Suspect]
     Active Substance: CHLOROQUINE
     Indication: PLASMODIUM VIVAX INFECTION
     Dosage: ORAL CHLOQUINE (TOTAL DOSE 5.1 G)
     Route: 065

REACTIONS (7)
  - Hepatic failure [Fatal]
  - Gamma-glutamyltransferase increased [Fatal]
  - Blood alkaline phosphatase increased [Fatal]
  - Aspartate aminotransferase increased [Fatal]
  - Alanine aminotransferase increased [Fatal]
  - Cholestasis [Fatal]
  - Blood bilirubin increased [Fatal]
